FAERS Safety Report 13780163 (Version 2)
Quarter: 2017Q4

REPORT INFORMATION
  Report Type: Spontaneous
  Country: NO (occurrence: NO)
  Receive Date: 20170724
  Receipt Date: 20171125
  Transmission Date: 20180320
  Serious: Yes (Other)
  Sender: FDA-Public Use
  Company Number: NO-AMGEN-NORSP2017084500

PATIENT
  Age: 76 Year
  Sex: Female
  Weight: 57 kg

DRUGS (5)
  1. CALCIGRAN FORTE [Concomitant]
     Active Substance: CALCIUM CARBONATE\CHOLECALCIFEROL
     Indication: OSTEOPOROSIS
     Dosage: 1000/800, QD (CHEWING TABLET)
     Route: 048
  2. PROLIA [Suspect]
     Active Substance: DENOSUMAB
     Indication: OSTEOPOROSIS POSTMENOPAUSAL
     Dosage: 60 MG, Q6MO
     Route: 058
     Dates: start: 20151015, end: 20170424
  3. OVESTERIN [Concomitant]
     Active Substance: ESTRIOL
     Indication: BLOOD OESTROGEN ABNORMAL
     Dosage: 1 MG, QD
     Route: 048
  4. ACLASTA [Concomitant]
     Active Substance: ZOLEDRONIC ACID
     Indication: OSTEOPOROSIS
     Dosage: UNK
  5. INFLUENZA VACCINE [Suspect]
     Active Substance: INFLUENZA VIRUS VACCINE
     Indication: IMMUNISATION
     Dosage: 0.5 ML, UNK
     Route: 058
     Dates: start: 20161013, end: 20161013

REACTIONS (14)
  - Infection [Recovered/Resolved]
  - Feeling hot [Unknown]
  - Paraesthesia [Unknown]
  - Arthralgia [Recovering/Resolving]
  - Pelvic pain [Unknown]
  - General physical health deterioration [Recovered/Resolved]
  - Temporomandibular joint syndrome [Recovered/Resolved]
  - Headache [Recovering/Resolving]
  - Musculoskeletal pain [Unknown]
  - Mucous membrane disorder [Unknown]
  - Myalgia [Recovering/Resolving]
  - Tooth disorder [Unknown]
  - Weight decreased [Unknown]
  - Loose tooth [Unknown]

NARRATIVE: CASE EVENT DATE: 20161017
